FAERS Safety Report 16058209 (Version 1)
Quarter: 2019Q1

REPORT INFORMATION
  Report Type: Spontaneous
  Country: US (occurrence: US)
  Receive Date: 20190311
  Receipt Date: 20190311
  Transmission Date: 20190418
  Serious: Yes (Other)
  Sender: FDA-Public Use
  Company Number: US-VYERA PHARMACEUTICALS, LLC-2018VYE00003

PATIENT
  Age: 36 Year
  Sex: Male
  Weight: 84.13 kg

DRUGS (4)
  1. LEUCOVORIN CALCIUM. [Concomitant]
     Active Substance: LEUCOVORIN CALCIUM
     Dosage: 5 MG, 2X/DAY
     Route: 048
     Dates: start: 20171228
  2. DARAPRIM [Suspect]
     Active Substance: PYRIMETHAMINE
     Indication: EYE INFECTION TOXOPLASMAL
     Dosage: 100 MG, 1X/DAY
     Dates: start: 20171228, end: 20180118
  3. SULFADIAZINE. [Suspect]
     Active Substance: SULFADIAZINE
     Dosage: 500 MG, 4X/DAY
     Route: 048
     Dates: start: 20171228, end: 20180118
  4. DARAPRIM [Suspect]
     Active Substance: PYRIMETHAMINE
     Dosage: 25 MG, 2X/DAY
     Route: 048
     Dates: end: 20180118

REACTIONS (3)
  - Neutropenia [Recovered/Resolved]
  - Pyrexia [None]
  - Dental discomfort [None]

NARRATIVE: CASE EVENT DATE: 20180118
